FAERS Safety Report 5038053-2 (Version None)
Quarter: 2006Q2

REPORT INFORMATION
  Report Type: 
  Country: None (occurrence: None)
  Receive Date: 20060531
  Receipt Date: 20021112
  Transmission Date: 20061013
  Serious: Yes (Other)
  Sender: FDA-Public Use
  Company Number: CVAT2002US00801

PATIENT
  Sex: Male

DRUGS (5)
  1. VOLTAREN [Suspect]
     Dosage: 1 GTT, QID, TOPICAL OPHTH.
     Route: 047
     Dates: start: 20021011, end: 20021021
  2. TOBRADEX [Concomitant]
  3. TRIAMTERENE AND HYDROCHLOROTHIAZID ^HARRIS^ (HYDROCHLOROTHIAZIDE, TRIA [Concomitant]
  4. LOPRESSOR [Concomitant]
  5. VIOXX [Concomitant]

REACTIONS (1)
  - CORNEAL THINNING [None]
